FAERS Safety Report 9999142 (Version 1)
Quarter: 2014Q1

REPORT INFORMATION
  Report Type: Spontaneous
  Country: US (occurrence: None)
  Receive Date: 20140311
  Receipt Date: 20140311
  Transmission Date: 20141002
  Serious: Yes (Other)
  Sender: FDA-Public Use
  Company Number: None

PATIENT
  Age: 64 Year
  Sex: Female
  Weight: 71.22 kg

DRUGS (2)
  1. CYMBALTA [Suspect]
     Indication: NEUROPATHY PERIPHERAL
     Dosage: 1 X NIGHT
     Route: 048
     Dates: start: 20090801, end: 20140210
  2. CYMBALTA [Suspect]
     Indication: DEPRESSION
     Dosage: 1 X NIGHT
     Route: 048
     Dates: start: 20090801, end: 20140210

REACTIONS (10)
  - Drug dose omission [None]
  - Halo vision [None]
  - Aura [None]
  - Impaired work ability [None]
  - Drug dependence [None]
  - Dry mouth [None]
  - Dry eye [None]
  - Gait disturbance [None]
  - Hypertension [None]
  - Drug ineffective [None]
